FAERS Safety Report 6854169-X (Version None)
Quarter: 2010Q3

REPORT INFORMATION
  Report Type: 
  Country: None (occurrence: None)
  Receive Date: 20100717
  Receipt Date: 20071228
  Transmission Date: 20110219
  Serious: No
  Sender: FDA-Public Use
  Company Number: US-PFIZER INC-2008000313

PATIENT
  Sex: Female
  Weight: 62.727 kg

DRUGS (2)
  1. CHANTIX [Suspect]
     Indication: SMOKING CESSATION THERAPY
     Dates: start: 20071201
  2. PROTONIX [Concomitant]
     Indication: PERFORATED ULCER

REACTIONS (4)
  - ABDOMINAL DISCOMFORT [None]
  - FEELING HOT [None]
  - NAUSEA [None]
  - SLEEP DISORDER [None]
